FAERS Safety Report 9543867 (Version 2)
Quarter: 2014Q1

REPORT INFORMATION
  Report Type: Spontaneous
  Country: US (occurrence: None)
  Receive Date: 20130524
  Receipt Date: 20130724
  Transmission Date: 20141002
  Serious: Yes (Other)
  Sender: FDA-Public Use
  Company Number: PHEH2012US023745

PATIENT
  Age: 53 Year
  Sex: Male
  Weight: 64.8 kg

DRUGS (1)
  1. GILENYA (FINGOLIMOD) CAPSULE, 0.5MG [Suspect]
     Indication: RELAPSING-REMITTING MULTIPLE SCLEROSIS
     Route: 048
     Dates: start: 201109

REACTIONS (6)
  - White blood cell count decreased [None]
  - Inappropriate schedule of drug administration [None]
  - Lymphocyte count decreased [None]
  - Neutrophil count increased [None]
  - Mean platelet volume increased [None]
  - Monocyte count increased [None]
